FAERS Safety Report 8426611-4 (Version None)
Quarter: 2012Q2

REPORT INFORMATION
  Report Type: 
  Country: None (occurrence: None)
  Receive Date: 20120604
  Receipt Date: 20120522
  Transmission Date: 20120825
  Serious: No
  Sender: FDA-Public Use
  Company Number: 2012SP022584

PATIENT
  Age: 40 Year
  Sex: Male

DRUGS (4)
  1. RIBAVIRIN [Suspect]
     Indication: HEPATITIS C
  2. VICTRELIS [Suspect]
     Indication: HEPATITIS C
     Dosage: 800 MG;TID;PO, 800 MG;TID;PO
     Route: 048
     Dates: start: 20120503
  3. VICTRELIS [Suspect]
     Indication: HEPATITIS C
     Dosage: 800 MG;TID;PO, 800 MG;TID;PO
     Route: 048
     Dates: start: 20120416, end: 20120418
  4. PEG-INTRON [Suspect]
     Indication: HEPATITIS C

REACTIONS (7)
  - CHILLS [None]
  - VOMITING [None]
  - DECREASED APPETITE [None]
  - PLATELET COUNT DECREASED [None]
  - ASTHENIA [None]
  - HAEMORRHAGE [None]
  - PHOSPHENES [None]
